FAERS Safety Report 15727247 (Version 6)
Quarter: 2019Q2

REPORT INFORMATION
  Report Type: Report from Study
  Country: US (occurrence: US)
  Receive Date: 20181217
  Receipt Date: 20190613
  Transmission Date: 20190711
  Serious: Yes (Hospitalization, Other)
  Sender: FDA-Public Use
  Company Number: US-BRISTOL-MYERS SQUIBB COMPANY-BMS-2018-116188

PATIENT
  Sex: Female

DRUGS (1)
  1. NIVOLUMAB [Suspect]
     Active Substance: NIVOLUMAB
     Indication: RENAL CELL CARCINOMA
     Dosage: UNK, Q4WK
     Route: 065
     Dates: start: 201807, end: 20190329

REACTIONS (18)
  - Delirium [Unknown]
  - Fluid retention [Unknown]
  - Visual impairment [Unknown]
  - Musculoskeletal pain [Unknown]
  - Hepatic enzyme increased [Unknown]
  - Pain [Not Recovered/Not Resolved]
  - Musculoskeletal stiffness [Not Recovered/Not Resolved]
  - Cellulitis staphylococcal [Unknown]
  - Blood potassium decreased [Unknown]
  - Thrombosis [Unknown]
  - Movement disorder [Unknown]
  - Peripheral swelling [Unknown]
  - Bone pain [Unknown]
  - Fatigue [Unknown]
  - Bursitis [Unknown]
  - Arthralgia [Unknown]
  - Dehydration [Unknown]
  - Sinus headache [Not Recovered/Not Resolved]
